FAERS Safety Report 24781085 (Version 1)
Quarter: 2024Q4

REPORT INFORMATION
  Report Type: Spontaneous
  Country: US (occurrence: US)
  Receive Date: 20241227
  Receipt Date: 20241227
  Transmission Date: 20250114
  Serious: No
  Sender: ROCHE
  Company Number: US-ROCHE-10000165284

PATIENT
  Sex: Male

DRUGS (7)
  1. RITUXIMAB [Suspect]
     Active Substance: RITUXIMAB
     Indication: Von Willebrand^s disease
     Route: 042
  2. RITUXIMAB [Suspect]
     Active Substance: RITUXIMAB
     Indication: Chronic lymphocytic leukaemia
     Dosage: CYCLE ONE WAS FOUR DOSES OF WEEKLY RITUXIMAB 375 MG/M2, THEN MONTHLY RITUXIMAB 375 MG/M2
     Route: 042
  3. VENETOCLAX [Suspect]
     Active Substance: VENETOCLAX
     Indication: Von Willebrand^s disease
     Route: 065
  4. VENETOCLAX [Suspect]
     Active Substance: VENETOCLAX
     Indication: Chronic lymphocytic leukaemia
     Route: 065
  5. APIXABAN [Concomitant]
     Active Substance: APIXABAN
  6. ASPIRIN [Concomitant]
     Active Substance: ASPIRIN
  7. IBRUTINIB [Concomitant]
     Active Substance: IBRUTINIB

REACTIONS (2)
  - Neutropenia [Unknown]
  - Off label use [Unknown]
